FAERS Safety Report 24593120 (Version 1)
Quarter: 2024Q4

REPORT INFORMATION
  Report Type: Spontaneous
  Country: US (occurrence: None)
  Receive Date: 20241107
  Receipt Date: 20241107
  Transmission Date: 20250115
  Serious: No
  Sender: Public
  Company Number: None

PATIENT
  Age: 67 Year
  Sex: Male

DRUGS (2)
  1. METOLAZONE [Suspect]
     Active Substance: METOLAZONE
     Indication: Oedema
  2. METOLAZONE [Suspect]
     Active Substance: METOLAZONE
     Indication: Renal impairment

REACTIONS (7)
  - Hyponatraemia [None]
  - Dizziness [None]
  - Asthenia [None]
  - Nausea [None]
  - Hypophagia [None]
  - Feeling abnormal [None]
  - Fall [None]

NARRATIVE: CASE EVENT DATE: 20240623
